FAERS Safety Report 25238440 (Version 2)
Quarter: 2025Q2

REPORT INFORMATION
  Report Type: Report from Study
  Country: AE (occurrence: AE)
  Receive Date: 20250425
  Receipt Date: 20250520
  Transmission Date: 20250717
  Serious: Yes (Death, Hospitalization)
  Sender: STEMLINE THERAPEUTICS
  Company Number: AE-STEMLINE THERAPEUTICS, INC-2025-STML-AE001427

PATIENT

DRUGS (1)
  1. ORSERDU [Suspect]
     Active Substance: ELACESTRANT
     Indication: Breast cancer metastatic
     Dosage: 345 MG, DAILY
     Route: 048
     Dates: start: 20250102

REACTIONS (2)
  - Death [Fatal]
  - Blood glucose increased [Unknown]

NARRATIVE: CASE EVENT DATE: 20250417
